FAERS Safety Report 8396295-2 (Version None)
Quarter: 2012Q2

REPORT INFORMATION
  Report Type: 
  Country: None (occurrence: None)
  Receive Date: 20120530
  Receipt Date: 20120518
  Transmission Date: 20120825
  Serious: Yes (Hospitalization)
  Sender: FDA-Public Use
  Company Number: ES-ELI_LILLY_AND_COMPANY-ES201205006810

PATIENT
  Sex: Female
  Weight: 75 kg

DRUGS (13)
  1. ACETAMINOPHEN [Concomitant]
     Indication: PAIN
     Dosage: 1000 MG, QD
     Route: 048
  2. LEVOTHYROXINE SODIUM [Concomitant]
     Indication: THYROID DISORDER
     Dosage: 75 MG, QD
     Route: 048
  3. ALMAGATE [Concomitant]
     Indication: PROPHYLAXIS
     Dosage: 500 MG, BID
     Route: 048
  4. FORTEO [Suspect]
     Indication: OSTEOPOROSIS
     Dosage: 20 UG, QD
     Route: 058
     Dates: start: 20110215, end: 20120427
  5. GLUCOSAMINE [Concomitant]
     Indication: OSTEOPOROSIS
     Dosage: 1500 MG, QD
     Route: 048
  6. SPIRIVA [Concomitant]
     Indication: ASTHMA
     Dosage: 18 MG, QD
     Route: 055
  7. FLUDROCORTISONE ACETATE [Concomitant]
     Indication: ADDISON'S DISEASE
     Dosage: 0.1 MG, QD
     Route: 048
  8. HYDROCORTISONE [Concomitant]
     Indication: ADDISON'S DISEASE
     Dosage: 40 MG, QD
     Route: 048
  9. ALBUTEROL [Concomitant]
     Indication: ASTHMA
     Dosage: 1000 MG, PRN
     Route: 055
  10. ANASMA [Concomitant]
     Indication: ASTHMA
     Dosage: 250 MG, BID
     Route: 055
  11. FORTEO [Suspect]
     Dosage: 20 UG, QD
     Route: 058
     Dates: start: 20120505
  12. OMEPRAZOLE [Concomitant]
     Indication: PROPHYLAXIS
     Dosage: 20 MG, QD
  13. LORMETAZEPAM [Concomitant]
     Indication: INSOMNIA
     Dosage: 2 MG, QD
     Route: 048

REACTIONS (2)
  - ADDISON'S DISEASE [None]
  - OEDEMA PERIPHERAL [None]
